FAERS Safety Report 5715099-X (Version None)
Quarter: 2008Q2

REPORT INFORMATION
  Report Type: 
  Country: None (occurrence: None)
  Receive Date: 20080423
  Receipt Date: 20080326
  Transmission Date: 20081010
  Serious: No
  Sender: FDA-Public Use
  Company Number: US-BOEHRINGER INGELHEIM GMBH, GERMANY-2007-BP-26527BP

PATIENT
  Sex: Female
  Weight: 83 kg

DRUGS (6)
  1. MIRAPEX [Suspect]
     Indication: RESTLESS LEGS SYNDROME
     Route: 048
     Dates: start: 20060404
  2. FE [Concomitant]
     Dates: start: 20070925
  3. REQUIP [Concomitant]
     Indication: RESTLESS LEGS SYNDROME
  4. CLOZARIL [Concomitant]
     Route: 048
     Dates: start: 20071227
  5. CLONAZEPAM [Concomitant]
     Indication: RESTLESS LEGS SYNDROME
     Dates: start: 20070925
  6. FLONASE [Concomitant]
     Indication: HYPERSENSITIVITY
     Route: 045
     Dates: start: 20060404

REACTIONS (4)
  - ARTHRALGIA [None]
  - BACK PAIN [None]
  - DRUG INEFFECTIVE [None]
  - GAMBLING [None]
